FAERS Safety Report 4323033-2 (Version None)
Quarter: 2004Q1

REPORT INFORMATION
  Report Type: 
  Country: None (occurrence: None)
  Receive Date: 20040322
  Receipt Date: 20040304
  Transmission Date: 20041129
  Serious: Yes (Hospitalization)
  Sender: FDA-Public Use
  Company Number: 192152

PATIENT
  Age: 54 Year
  Sex: Female
  Weight: 68.0396 kg

DRUGS (5)
  1. AVONEX [Suspect]
     Indication: MULTIPLE SCLEROSIS
     Dosage: 30 MCG QW IM
     Route: 030
     Dates: start: 19960901, end: 20030101
  2. AVONEX [Suspect]
     Indication: MULTIPLE SCLEROSIS
     Dosage: 30 MCG QW IM
     Route: 030
     Dates: start: 20030801
  3. XANAX [Concomitant]
  4. DITROPAN [Concomitant]
  5. ZANAFLEX [Concomitant]

REACTIONS (8)
  - ANKLE FRACTURE [None]
  - CLOSTRIDIUM COLITIS [None]
  - DEPRESSION [None]
  - FALL [None]
  - INFLUENZA [None]
  - ORTHOSTATIC HYPOTENSION [None]
  - PYREXIA [None]
  - SYNCOPE [None]
